FAERS Safety Report 23871054 (Version 1)
Quarter: 2024Q2

REPORT INFORMATION
  Report Type: Spontaneous
  Country: US (occurrence: US)
  Receive Date: 20240518
  Receipt Date: 20240518
  Transmission Date: 20240716
  Serious: No
  Sender: FDA-Public Use
  Company Number: US-BoehringerIngelheim-2024-BI-028499

PATIENT
  Age: 85 Year

DRUGS (1)
  1. JARDIANCE [Suspect]
     Active Substance: EMPAGLIFLOZIN
     Indication: Product used for unknown indication

REACTIONS (3)
  - Hypotension [Unknown]
  - Malaise [Unknown]
  - Dermatitis [Unknown]

NARRATIVE: CASE EVENT DATE: 20240517
